FAERS Safety Report 6298881-2 (Version None)
Quarter: 2009Q3

REPORT INFORMATION
  Report Type: 
  Country: None (occurrence: None)
  Receive Date: 20090804
  Receipt Date: 20090720
  Transmission Date: 20100115
  Serious: Yes (Other)
  Sender: FDA-Public Use
  Company Number: 8049331

PATIENT
  Age: 71 Year
  Sex: Female

DRUGS (5)
  1. PREDNISOLONE [Suspect]
     Indication: PYODERMA GANGRENOSUM
     Dosage: 40 MG/D
  2. CYCLOSPORINE [Suspect]
     Indication: PYODERMA GANGRENOSUM
  3. DAPSONE [Suspect]
     Indication: PYODERMA GANGRENOSUM
  4. MINOCYCLINE HCL [Suspect]
     Indication: PYODERMA GANGRENOSUM
  5. MYCOPHENOLATE MOFETIL [Suspect]
     Indication: PYODERMA GANGRENOSUM

REACTIONS (15)
  - ACANTHOSIS [None]
  - DISCOMFORT [None]
  - EMOTIONAL DISTRESS [None]
  - ERYTHEMA [None]
  - GRANULOMA [None]
  - HYPERTENSION [None]
  - NODULE [None]
  - OSTEOPOROSIS [None]
  - PYODERMA [None]
  - SCAB [None]
  - SCAR [None]
  - SECRETION DISCHARGE [None]
  - SKIN EROSION [None]
  - SOFT TISSUE DISORDER [None]
  - TREATMENT FAILURE [None]
